FAERS Safety Report 8742402 (Version 4)
Quarter: 2015Q1

REPORT INFORMATION
  Report Type: Report from Study
  Country: JP (occurrence: JP)
  Receive Date: 20120824
  Receipt Date: 20150225
  Transmission Date: 20150721
  Serious: Yes (Death, Hospitalization)
  Sender: FDA-Public Use
  Company Number: JP-PFIZER INC-2012179147

PATIENT
  Age: 42 Year
  Sex: Male
  Weight: 58.3 kg

DRUGS (18)
  1. TAKEPRON OD [Concomitant]
     Active Substance: LANSOPRAZOLE
     Dosage: 15 MG, 1X/DAY
     Route: 048
     Dates: start: 20100824
  2. OXYCONTIN [Concomitant]
     Active Substance: OXYCODONE HYDROCHLORIDE
     Dosage: 20 MG, 2X/DAY
     Route: 048
     Dates: start: 20120323
  3. D ALFA [Concomitant]
     Active Substance: ALFACALCIDOL
     Dosage: 1 UG, 1X/DAY
     Route: 048
     Dates: start: 20120626
  4. PREDONINE [Concomitant]
     Active Substance: PREDNISOLONE\PREDNISOLONE ACETATE\PREDNISOLONE SODIUM SUCCINATE
     Dosage: 5 MG, 1X/DAY
     Route: 048
     Dates: start: 20101013
  5. MUCOSTA [Concomitant]
     Active Substance: REBAMIPIDE
     Dosage: 100 MG, 3X/DAY
     Route: 048
     Dates: start: 20100706, end: 20120705
  6. OXINORM (OXYCODONE HYDROCHLORIDE) [Concomitant]
     Active Substance: OXYCODONE HYDROCHLORIDE
     Dosage: 5 MG, AS NEEDED
     Route: 048
     Dates: start: 20100323
  7. NAUZELIN [Suspect]
     Active Substance: DOMPERIDONE
     Dosage: 10 MG, 3X/DAY
     Route: 048
     Dates: start: 20100726, end: 20120717
  8. PRIMPERAN [Concomitant]
     Active Substance: METOCLOPRAMIDE HYDROCHLORIDE
     Dosage: 5 MG, 3X/DAY
     Route: 048
     Dates: start: 20120626, end: 20120717
  9. RANMARK [Concomitant]
     Active Substance: DENOSUMAB
     Dosage: 120 MG, MONTHLY
     Route: 058
     Dates: start: 20120628
  10. LYRICA [Concomitant]
     Active Substance: PREGABALIN
     Dosage: 75 MG, 2X/DAY
     Route: 048
     Dates: start: 20120611
  11. FORSENID [Concomitant]
     Dosage: 24 MG, AS NEEDED
     Route: 048
     Dates: start: 20120629
  12. XALKORI [Suspect]
     Active Substance: CRIZOTINIB
     Indication: NON-SMALL CELL LUNG CANCER
     Dosage: 250 MG, 2X/DAY
     Route: 048
     Dates: start: 20120621, end: 20120712
  13. CALCIUM LACTATE [Concomitant]
     Active Substance: CALCIUM LACTATE
     Dosage: 1 G, 3X/DAY
     Route: 048
     Dates: start: 20120626
  14. MAGNESIUM OXIDE. [Concomitant]
     Active Substance: MAGNESIUM OXIDE
     Dosage: 1 G, 2X/DAY
     Route: 048
     Dates: start: 20100323
  15. GENINAX [Concomitant]
     Active Substance: GARENOXACIN MESYLATE
     Dosage: 400 MG, 1X/DAY
     Route: 048
     Dates: start: 20120705, end: 20120709
  16. NOVAMIN [Suspect]
     Active Substance: PROCHLORPERAZINE MALEATE
     Dosage: 5 MG, 3X/DAY
     Route: 048
     Dates: start: 20120627, end: 20120717
  17. PROMAC D [Concomitant]
     Active Substance: NITROFURANTOIN
     Dosage: 75 MG, 2X/DAY
     Route: 048
     Dates: start: 20120706
  18. LOXONIN [Concomitant]
     Active Substance: LOXOPROFEN SODIUM
     Dosage: 60 MG, 3X/DAY
     Route: 048
     Dates: start: 20100323

REACTIONS (2)
  - Neutropenia [Recovered/Resolved]
  - Akathisia [Recovered/Resolved]

NARRATIVE: CASE EVENT DATE: 20120628
